FAERS Safety Report 5648687-X (Version None)
Quarter: 2008Q1

REPORT INFORMATION
  Report Type: 
  Country: None (occurrence: None)
  Receive Date: 20080304
  Receipt Date: 20080226
  Transmission Date: 20080703
  Serious: Yes (Other)
  Sender: FDA-Public Use
  Company Number: B0509687A

PATIENT
  Age: 71 Year
  Sex: Male

DRUGS (9)
  1. VALTREX [Suspect]
     Indication: HERPES ZOSTER
     Route: 048
     Dates: start: 20080219, end: 20080220
  2. ASPIRIN [Concomitant]
     Route: 048
  3. PANALDINE [Concomitant]
     Route: 048
  4. WARFARIN SODIUM [Concomitant]
     Route: 048
  5. SIGMART [Concomitant]
     Route: 065
  6. CARDENALIN [Concomitant]
     Route: 048
  7. DIOVAN [Concomitant]
     Route: 048
  8. ENALAPRIL MALEATE [Concomitant]
     Route: 048
  9. ADALAT [Concomitant]
     Route: 048

REACTIONS (2)
  - DELUSION [None]
  - HALLUCINATION [None]
